FAERS Safety Report 11871022 (Version 1)
Quarter: 2015Q4

REPORT INFORMATION
  Report Type: Spontaneous
  Country: US (occurrence: None)
  Receive Date: 20151224
  Receipt Date: 20151224
  Transmission Date: 20160305
  Serious: No
  Sender: FDA-Public Use
  Company Number: None

PATIENT
  Age: 59 Year
  Sex: Male

DRUGS (13)
  1. METHADONE [Suspect]
     Active Substance: METHADONE HYDROCHLORIDE
     Route: 042
  2. AMLODIPINE [Concomitant]
     Active Substance: AMLODIPINE BESYLATE
  3. DOCUSATE [Concomitant]
     Active Substance: DOCUSATE
  4. MORPHINE [Suspect]
     Active Substance: MORPHINE
     Indication: PAIN
     Route: 042
     Dates: start: 20150824, end: 20150824
  5. ACETAMINOPEN [Concomitant]
     Active Substance: ACETAMINOPHEN
  6. PROMETHAZINE [Concomitant]
     Active Substance: PROMETHAZINE\PROMETHAZINE HYDROCHLORIDE
  7. CLONIDINE. [Concomitant]
     Active Substance: CLONIDINE
  8. GABAPENTIN. [Concomitant]
     Active Substance: GABAPENTIN
  9. HEPARIN [Concomitant]
     Active Substance: HEPARIN SODIUM
  10. ONDANSETRON [Concomitant]
     Active Substance: ONDANSETRON
  11. PHENYLEPHRINE [Concomitant]
     Active Substance: PHENYLEPHRINE\PHENYLEPHRINE HYDROCHLORIDE
  12. SENNA [Concomitant]
     Active Substance: SENNA LEAF\SENNOSIDES\SENNOSIDES A AND B
  13. SERTRALINE [Concomitant]
     Active Substance: SERTRALINE HYDROCHLORIDE

REACTIONS (3)
  - Respiratory rate decreased [None]
  - Oxygen saturation decreased [None]
  - Unresponsive to stimuli [None]

NARRATIVE: CASE EVENT DATE: 20150824
